FAERS Safety Report 6554638-6 (Version None)
Quarter: 2010Q1

REPORT INFORMATION
  Report Type: 
  Country: None (occurrence: None)
  Receive Date: 20100127
  Receipt Date: 20100121
  Transmission Date: 20100710
  Serious: Yes (Hospitalization, Other)
  Sender: FDA-Public Use
  Company Number: US-PFIZER INC-2010009216

PATIENT
  Sex: Female
  Weight: 70.306 kg

DRUGS (17)
  1. CHANTIX [Suspect]
     Indication: SMOKING CESSATION THERAPY
     Route: 048
     Dates: start: 20100117
  2. AVAPRO [Suspect]
     Route: 048
  3. PROZAC [Concomitant]
     Dosage: FREQUENCY: 2X/DAY,
     Route: 048
  4. WELLBUTRIN [Concomitant]
     Dosage: 300 MG, 1X/DAY
     Route: 048
  5. LAMOTRIGINE [Concomitant]
     Indication: AFFECTIVE DISORDER
     Dosage: FREQUENCY: 2X/DAY,
     Route: 048
  6. METFORMIN HYDROCHLORIDE [Concomitant]
     Indication: DIABETES MELLITUS
     Dosage: FREQUENCY: 2X/DAY,
     Route: 048
  7. TRAZODONE HYDROCHLORIDE [Concomitant]
     Dosage: 100 MG, 1X/DAY
     Route: 048
  8. SEROQUEL [Concomitant]
     Dosage: 100 MG, 1X/DAY
     Route: 048
  9. XANAX [Concomitant]
     Dosage: FREQUENCY: 2X/DAY,
     Route: 048
  10. METOPROLOL TARTRATE [Concomitant]
     Indication: HYPERTENSION
     Dosage: 50 MG, 1X/DAY
     Route: 048
  11. HYDROCHLOROTHIAZIDE [Concomitant]
     Indication: HYPERTENSION
     Dosage: 25 MG, 1X/DAY
     Route: 048
  12. NEXIUM [Concomitant]
     Dosage: 40 MG, 1X/DAY
     Route: 048
  13. POTASSIUM [Concomitant]
     Dosage: 10 MG, 1X/DAY
     Route: 048
  14. VITAMIN B1 TAB [Concomitant]
     Dosage: 100 MG, UNK
     Route: 048
  15. FOLIC ACID [Concomitant]
     Dosage: 1 MG, 1X/DAY
     Route: 048
  16. MULTI-VITAMINS [Concomitant]
     Dosage: UNK
     Route: 048
  17. FISH OIL [Concomitant]
     Dosage: UNK
     Route: 048

REACTIONS (7)
  - BACK INJURY [None]
  - DEPRESSED MOOD [None]
  - IRRITABILITY [None]
  - MOOD ALTERED [None]
  - PANIC ATTACK [None]
  - PARAESTHESIA [None]
  - SWELLING [None]
